FAERS Safety Report 4588923-4 (Version None)
Quarter: 2005Q1

REPORT INFORMATION
  Report Type: 
  Country: None (occurrence: None)
  Receive Date: 20050216
  Receipt Date: 20050127
  Transmission Date: 20050727
  Serious: Yes (Death)
  Sender: FDA-Public Use
  Company Number: USA050189483

PATIENT
  Age: 53 Year
  Sex: Male

DRUGS (5)
  1. ZYPREXA [Suspect]
     Indication: AFFECTIVE DISORDER
     Dosage: 10 MG DAY
     Dates: start: 20050110
  2. LEXAPRO [Concomitant]
  3. XANAX (ALPRAZOLAM DUM) [Concomitant]
  4. OXYCONTIN [Concomitant]
  5. TRAZODONE HCL [Concomitant]

REACTIONS (2)
  - PERSONALITY DISORDER [None]
  - UNEVALUABLE EVENT [None]
